FAERS Safety Report 22793755 (Version 3)
Quarter: 2024Q1

REPORT INFORMATION
  Report Type: Spontaneous
  Country: JP (occurrence: JP)
  Receive Date: 20230807
  Receipt Date: 20240312
  Transmission Date: 20240410
  Serious: Yes (Hospitalization, Other)
  Sender: FDA-Public Use
  Company Number: JP-SA-SAC20230803000171

PATIENT
  Age: 60 Year
  Sex: Male

DRUGS (1)
  1. XYZAL [Suspect]
     Active Substance: LEVOCETIRIZINE DIHYDROCHLORIDE
     Indication: Product used for unknown indication
     Dosage: 5 MG, QD

REACTIONS (4)
  - Nephropathy toxic [Unknown]
  - Prescribed overdose [Unknown]
  - Condition aggravated [Unknown]
  - Prerenal failure [Recovered/Resolved]
